FAERS Safety Report 19436563 (Version 2)
Quarter: 2022Q2

REPORT INFORMATION
  Report Type: Spontaneous
  Country: US (occurrence: US)
  Receive Date: 20210618
  Receipt Date: 20220520
  Transmission Date: 20220720
  Serious: No
  Sender: FDA-Public Use
  Company Number: US-PFIZER INC-2021282330

PATIENT
  Age: 71 Year
  Sex: Female

DRUGS (1)
  1. PRISTIQ EXTENDED-RELEASE [Suspect]
     Active Substance: DESVENLAFAXINE SUCCINATE
     Indication: Bipolar disorder
     Dosage: UNK

REACTIONS (6)
  - Product dose omission issue [Unknown]
  - Behaviour disorder [Unknown]
  - Mood altered [Unknown]
  - Confusional state [Unknown]
  - Dizziness [Unknown]
  - Emotional distress [Unknown]
